FAERS Safety Report 10059054 (Version 3)
Quarter: 2014Q2

REPORT INFORMATION
  Report Type: Spontaneous
  Country: JP (occurrence: JP)
  Receive Date: 20140404
  Receipt Date: 20140416
  Transmission Date: 20141212
  Serious: Yes (Other)
  Sender: FDA-Public Use
  Company Number: JP-PFIZER INC-2014088948

PATIENT
  Age: 90 Year
  Sex: Female

DRUGS (1)
  1. LYRICA [Suspect]
     Indication: HYPOAESTHESIA
     Dosage: 50 MG, DAILY
     Route: 048
     Dates: start: 20130918

REACTIONS (3)
  - Deep vein thrombosis [Unknown]
  - Oedema peripheral [Unknown]
  - Musculoskeletal stiffness [Unknown]
